FAERS Safety Report 6298968-4 (Version None)
Quarter: 2009Q3

REPORT INFORMATION
  Report Type: 
  Country: None (occurrence: None)
  Receive Date: 20090806
  Receipt Date: 20090729
  Transmission Date: 20100115
  Serious: Yes (Other)
  Sender: FDA-Public Use
  Company Number: US-BAYER-200928557NA

PATIENT
  Age: 36 Year
  Sex: Female

DRUGS (1)
  1. MIRENA [Suspect]
     Indication: CONTRACEPTION
     Route: 015
     Dates: start: 20081101, end: 20090201

REACTIONS (4)
  - BLOOD OESTROGEN INCREASED [None]
  - OEDEMA [None]
  - OVARIAN CYST [None]
  - WEIGHT INCREASED [None]
